FAERS Safety Report 7183179-0 (Version None)
Quarter: 2010Q4

REPORT INFORMATION
  Report Type: 
  Country: None (occurrence: None)
  Receive Date: 20101208
  Receipt Date: 20101126
  Transmission Date: 20110411
  Serious: Yes (Hospitalization)
  Sender: FDA-Public Use
  Company Number: 2010EU005884

PATIENT
  Age: 60 Year
  Sex: Male

DRUGS (3)
  1. VESICARE [Suspect]
     Indication: BLADDER CANCER
     Dosage: 5 MG, ORAL
     Route: 048
     Dates: start: 20101022, end: 20101027
  2. TAMSULOSIN (TAMSULOSIN) FORMULATION UNKNOWN [Concomitant]
  3. ASPIRIN [Concomitant]

REACTIONS (5)
  - ABDOMINAL PAIN [None]
  - CONSTIPATION [None]
  - DYSPEPSIA [None]
  - DYSPHAGIA [None]
  - NAUSEA [None]
